FAERS Safety Report 8942290 (Version 1)
Quarter: 2012Q4

REPORT INFORMATION
  Report Type: Spontaneous
  Country: US (occurrence: None)
  Receive Date: 20121123
  Receipt Date: 20121123
  Transmission Date: 20130627
  Serious: Yes (Other)
  Sender: FDA-Public Use
  Company Number: E2B_00000469

PATIENT
  Age: 74 Year
  Sex: Female
  Weight: 56.25 kg

DRUGS (2)
  1. RAMIPRIL [Suspect]
     Indication: HYPERTENSION
     Dosage: (10 mg,2 in 1 d)
     Route: 048
  2. HYDROCHLOROTHIAZIDE(TABLETS) [Concomitant]

REACTIONS (4)
  - Tongue blistering [None]
  - Glossodynia [None]
  - Dysgeusia [None]
  - Oral mucosal blistering [None]
